FAERS Safety Report 15764581 (Version 2)
Quarter: 2019Q1

REPORT INFORMATION
  Report Type: Spontaneous
  Country: DK (occurrence: DK)
  Receive Date: 20181227
  Receipt Date: 20190108
  Transmission Date: 20190417
  Serious: Yes (Hospitalization)
  Sender: FDA-Public Use
  Company Number: DK-TEVA-2018-DK-991720

PATIENT
  Age: 24 Year
  Sex: Female

DRUGS (6)
  1. TERBUTALINE [Suspect]
     Active Substance: TERBUTALINE
     Indication: STATUS ASTHMATICUS
     Route: 042
  2. METHYLPREDNISOLONE. [Concomitant]
     Active Substance: METHYLPREDNISOLONE
     Route: 065
  3. TERBUTALINE [Suspect]
     Active Substance: TERBUTALINE
     Dosage: 5-25 MICROGRAM/MIN
     Route: 041
  4. SALBUTAMOL [Suspect]
     Active Substance: ALBUTEROL
     Indication: STATUS ASTHMATICUS
     Dosage: 10 X 2.5 MG
     Route: 045
  5. BENZYLPENICILLIN [Concomitant]
     Active Substance: PENICILLIN G
     Route: 065
  6. MAGNESIUM SULPHATE [Concomitant]
     Active Substance: MAGNESIUM SULFATE
     Route: 041

REACTIONS (3)
  - Paradoxical drug reaction [Recovered/Resolved]
  - Lactic acidosis [Recovered/Resolved]
  - Condition aggravated [Recovered/Resolved]
